FAERS Safety Report 23560105 (Version 1)
Quarter: 2024Q1

REPORT INFORMATION
  Report Type: Spontaneous
  Country: US (occurrence: None)
  Receive Date: 20240223
  Receipt Date: 20240223
  Transmission Date: 20240409
  Serious: No
  Sender: FDA-Public Use
  Company Number: None

PATIENT
  Age: 24 Year
  Sex: Female

DRUGS (4)
  1. OLUMIANT [Suspect]
     Active Substance: BARICITINIB
     Indication: Rheumatoid arthritis
     Dosage: TAKE 1 TABLET BY MOUTH DAILY AS DIRECTED.    ?
     Route: 048
     Dates: start: 202312
  2. OLUMIANT [Suspect]
     Active Substance: BARICITINIB
     Indication: Immune system disorder
  3. OLUMIANT [Suspect]
     Active Substance: BARICITINIB
     Indication: Rheumatoid arthritis
  4. OLUMIANT [Suspect]
     Active Substance: BARICITINIB
     Indication: Drug therapy

REACTIONS (2)
  - Malaise [None]
  - Therapy interrupted [None]
